FAERS Safety Report 16634131 (Version 1)
Quarter: 2019Q3

REPORT INFORMATION
  Report Type: Spontaneous
  Country: FR (occurrence: FR)
  Receive Date: 20190726
  Receipt Date: 20190726
  Transmission Date: 20191004
  Serious: Yes (Hospitalization)
  Sender: FDA-Public Use
  Company Number: FR-ABBVIE-19K-056-2865151-00

PATIENT
  Age: 46 Year
  Sex: Female
  Weight: 64 kg

DRUGS (1)
  1. HUMIRA [Suspect]
     Active Substance: ADALIMUMAB
     Indication: POLYCHONDRITIS
     Route: 058
     Dates: start: 2016

REACTIONS (1)
  - Mesenteric vein thrombosis [Recovered/Resolved]

NARRATIVE: CASE EVENT DATE: 201807
